FAERS Safety Report 5574103-2 (Version None)
Quarter: 2007Q4

REPORT INFORMATION
  Report Type: 
  Country: None (occurrence: None)
  Receive Date: 20071221
  Receipt Date: 20071210
  Transmission Date: 20080405
  Serious: Yes (Death)
  Sender: FDA-Public Use
  Company Number: 2007EN000121

PATIENT
  Sex: Female

DRUGS (1)
  1. ABELCET [Suspect]
     Indication: DRUG USE FOR UNKNOWN INDICATION
     Dosage: X1; IV
     Route: 042

REACTIONS (2)
  - BREAST CANCER [None]
  - MALIGNANT NEOPLASM PROGRESSION [None]
